FAERS Safety Report 6727906-2 (Version None)
Quarter: 2010Q2

REPORT INFORMATION
  Report Type: 
  Country: None (occurrence: None)
  Receive Date: 20100512
  Receipt Date: 20100322
  Transmission Date: 20101027
  Serious: No
  Sender: FDA-Public Use
  Company Number: 1000009110

PATIENT
  Age: 43 Year
  Sex: Male

DRUGS (14)
  1. SAVELLA [Suspect]
     Indication: PAIN
     Dosage: SEE IMAGE
     Route: 048
     Dates: start: 20000918, end: 20090918
  2. SAVELLA [Suspect]
     Indication: PAIN
     Dosage: SEE IMAGE
     Route: 048
     Dates: start: 20090919, end: 20090920
  3. SAVELLA [Suspect]
     Indication: PAIN
     Dosage: SEE IMAGE
     Route: 048
     Dates: start: 20090921, end: 20090924
  4. SAVELLA [Suspect]
     Indication: PAIN
     Dosage: SEE IMAGE
     Route: 048
     Dates: start: 20090925, end: 20100201
  5. SAVELLA [Suspect]
     Indication: PAIN
     Dosage: 50MG QAM AND 100 MG QHS,ORAL;100 MG (50 MG,2 IN 1 D),ORAL
     Route: 048
     Dates: start: 20100201, end: 20100301
  6. SAVELLA [Suspect]
     Indication: PAIN
     Dosage: 50MG QAM AND 100 MG QHS,ORAL;100 MG (50 MG,2 IN 1 D),ORAL
     Route: 048
     Dates: start: 20100301
  7. DEPAKOTE [Concomitant]
  8. NEURONTIN [Concomitant]
  9. DARVOCET [Concomitant]
  10. DIGOXIN [Concomitant]
  11. ATENOLOL [Concomitant]
  12. FIORICET [Concomitant]
  13. XANAX [Concomitant]
  14. TOPAMAX [Concomitant]

REACTIONS (5)
  - DECREASED APPETITE [None]
  - DRUG INEFFECTIVE [None]
  - DRY MOUTH [None]
  - FATIGUE [None]
  - PAIN [None]
